FAERS Safety Report 23631538 (Version 1)
Quarter: 2024Q1

REPORT INFORMATION
  Report Type: Spontaneous
  Country: CN (occurrence: CN)
  Receive Date: 20240314
  Receipt Date: 20240314
  Transmission Date: 20240410
  Serious: Yes (Other)
  Sender: FDA-Public Use
  Company Number: CN-PFIZER INC-PV202400034418

PATIENT
  Age: 17 Year
  Sex: Female
  Weight: 69 kg

DRUGS (2)
  1. AZITHROMYCIN [Suspect]
     Active Substance: AZITHROMYCIN
     Indication: Pneumonia
     Dosage: 0.5 G, 1X/DAY
     Route: 041
     Dates: start: 20240311, end: 20240311
  2. DEXTROSE [Concomitant]
     Active Substance: DEXTROSE\DEXTROSE MONOHYDRATE
     Indication: Vehicle solution use
     Dosage: 250 ML, 1X/DAY
     Route: 041
     Dates: start: 20240311, end: 20240311

REACTIONS (4)
  - Infusion site rash [Recovering/Resolving]
  - Pruritus [Recovering/Resolving]
  - Rash erythematous [Recovering/Resolving]
  - Injection site warmth [Recovering/Resolving]

NARRATIVE: CASE EVENT DATE: 20240311
